FAERS Safety Report 7272693-5 (Version None)
Quarter: 2011Q1

REPORT INFORMATION
  Report Type: 
  Country: None (occurrence: None)
  Receive Date: 20110126
  Receipt Date: 20110111
  Transmission Date: 20110831
  Serious: Yes (Hospitalization, Other)
  Sender: FDA-Public Use
  Company Number: UTC-003947

PATIENT
  Sex: Female

DRUGS (4)
  1. TRACLEER [Concomitant]
  2. DOGIXIN (DIGOXIN) [Concomitant]
  3. REMODULIN [Suspect]
     Indication: PULMONARY ARTERIAL HYPERTENSION
     Dates: start: 20100201
  4. ASPIRIN [Concomitant]

REACTIONS (3)
  - DELIRIUM [None]
  - FLUID RETENTION [None]
  - RENAL FAILURE [None]
